FAERS Safety Report 5316788-1 (Version None)
Quarter: 2007Q2

REPORT INFORMATION
  Report Type: 
  Country: None (occurrence: None)
  Receive Date: 20070501
  Receipt Date: 20070501
  Transmission Date: 20071010
  Serious: Yes (Life-Threatening)
  Sender: FDA-Public Use
  Company Number: None

PATIENT
  Age: 43 Year
  Sex: Male
  Weight: 68.9467 kg

DRUGS (1)
  1. LEVAQUIN [Suspect]
     Indication: PNEUMONIA
     Dosage: 7
     Dates: start: 20060620, end: 20060627

REACTIONS (13)
  - ALOPECIA [None]
  - EXCORIATION [None]
  - FOOD INTOLERANCE [None]
  - HAIR GROWTH ABNORMAL [None]
  - HYPOAESTHESIA [None]
  - JOINT LOCK [None]
  - PHOTOSENSITIVITY REACTION [None]
  - PRURITUS GENERALISED [None]
  - RASH GENERALISED [None]
  - SKIN DISCOLOURATION [None]
  - SKIN DISORDER [None]
  - SKIN EXFOLIATION [None]
  - TESTICULAR DISORDER [None]
